FAERS Safety Report 4882251-5 (Version None)
Quarter: 2006Q1

REPORT INFORMATION
  Report Type: 
  Country: None (occurrence: None)
  Receive Date: 20060117
  Receipt Date: 20050909
  Transmission Date: 20060701
  Serious: Yes (Other)
  Sender: FDA-Public Use
  Company Number: 200513010FR

PATIENT
  Age: 50 Year
  Sex: Female
  Weight: 83 kg

DRUGS (2)
  1. NASACORT [Suspect]
     Indication: RHINITIS PERENNIAL
     Route: 045
     Dates: start: 20050601, end: 20050704
  2. DETURGYLONE [Concomitant]
     Indication: RHINITIS PERENNIAL
     Route: 045
     Dates: start: 20050620, end: 20050704

REACTIONS (2)
  - HYPERTENSION [None]
  - SELF-MEDICATION [None]
